FAERS Safety Report 16656075 (Version 1)
Quarter: 2019Q3

REPORT INFORMATION
  Report Type: Spontaneous
  Country: US (occurrence: US)
  Receive Date: 20190801
  Receipt Date: 20190801
  Transmission Date: 20191004
  Serious: No
  Sender: FDA-Public Use
  Company Number: US-SHIRE-US201924608

PATIENT

DRUGS (1)
  1. VYVANSE [Suspect]
     Active Substance: LISDEXAMFETAMINE DIMESYLATE
     Indication: PRODUCT USED FOR UNKNOWN INDICATION
     Dosage: 40 MILLIGRAM
     Route: 065

REACTIONS (5)
  - Malaise [Unknown]
  - Blood pressure abnormal [Unknown]
  - Drug ineffective [Unknown]
  - Dry mouth [Unknown]
  - Product physical issue [Unknown]

NARRATIVE: CASE EVENT DATE: 20190721
